FAERS Safety Report 8811346 (Version 1)
Quarter: 2012Q4

REPORT INFORMATION
  Report Type: Spontaneous
  Country: KR (occurrence: None)
  Receive Date: 20120924
  Receipt Date: 20120924
  Transmission Date: 20130627
  Serious: Yes (Other)
  Sender: FDA-Public Use
  Company Number: 2012P1058211

PATIENT
  Age: 71 Year
  Sex: Male

DRUGS (2)
  1. METRONIDAZOLE [Suspect]
     Indication: INFECTIOUS COLITIS
     Route: 042
  2. METRONIDAZOLE [Suspect]
     Indication: INFECTIOUS COLITIS
     Route: 048

REACTIONS (8)
  - Somnolence [None]
  - Slow response to stimuli [None]
  - Dysarthria [None]
  - Cerebellar syndrome [None]
  - Ataxia [None]
  - Neurotoxicity [None]
  - Cerebellar syndrome [None]
  - Toxic encephalopathy [None]
